FAERS Safety Report 14730994 (Version 1)
Quarter: 2018Q2

REPORT INFORMATION
  Report Type: Spontaneous
  Country: JP (occurrence: JP)
  Receive Date: 20180406
  Receipt Date: 20180406
  Transmission Date: 20180711
  Serious: Yes (Other)
  Sender: FDA-Public Use
  Company Number: JP-GILEAD-2018-0330295

PATIENT
  Sex: Female
  Weight: 52 kg

DRUGS (2)
  1. SOVALDI [Suspect]
     Active Substance: SOFOSBUVIR
     Indication: HEPATITIS
     Dosage: UNK MG, UNK
     Route: 065
     Dates: end: 20151209
  2. REBETOL [Concomitant]
     Active Substance: RIBAVIRIN
     Indication: HEPATITIS
     Dosage: UNK
     Route: 065
     Dates: end: 20151209

REACTIONS (3)
  - Intracranial aneurysm [Not Recovered/Not Resolved]
  - Complex regional pain syndrome [Not Recovered/Not Resolved]
  - Rheumatoid arthritis [Not Recovered/Not Resolved]
